FAERS Safety Report 21596085 (Version 1)
Quarter: 2022Q4

REPORT INFORMATION
  Report Type: Spontaneous
  Country: DE (occurrence: DE)
  Receive Date: 20221115
  Receipt Date: 20221115
  Transmission Date: 20230112
  Serious: Yes (Hospitalization)
  Sender: FDA-Public Use
  Company Number: DE-ViiV Healthcare Limited-64179

PATIENT

DRUGS (1)
  1. JULUCA [Suspect]
     Active Substance: DOLUTEGRAVIR SODIUM\RILPIVIRINE HYDROCHLORIDE
     Indication: HIV infection
     Dosage: UNK 50 MG/25MG

REACTIONS (4)
  - Sedative therapy [Unknown]
  - Endotracheal intubation [Unknown]
  - Mechanical ventilation [Unknown]
  - Gastrointestinal tube insertion [Unknown]
